FAERS Safety Report 25043937 (Version 2)
Quarter: 2025Q4

REPORT INFORMATION
  Report Type: Spontaneous
  Country: JP (occurrence: JP)
  Receive Date: 20250306
  Receipt Date: 20251119
  Transmission Date: 20260119
  Serious: Yes (Other)
  Sender: GENMAB
  Company Number: JP-GENMAB-2025-00545

PATIENT
  Age: 8 Decade
  Sex: Female

DRUGS (1)
  1. EPKINLY [Suspect]
     Active Substance: EPCORITAMAB-BYSP
     Indication: Follicular lymphoma
     Dosage: UNK
     Route: 058

REACTIONS (2)
  - Follicular lymphoma [Unknown]
  - Cytokine release syndrome [Unknown]
